FAERS Safety Report 10455051 (Version 1)
Quarter: 2014Q3

REPORT INFORMATION
  Report Type: Report from Study
  Country: TR (occurrence: TR)
  Receive Date: 20140915
  Receipt Date: 20140915
  Transmission Date: 20150326
  Serious: Yes (Other)
  Sender: FDA-Public Use
  Company Number: TR-BRISTOL-MYERS SQUIBB COMPANY-21371802

PATIENT
  Age: 49 Year
  Sex: Female

DRUGS (13)
  1. DIAMICRON [Suspect]
     Active Substance: GLICLAZIDE
  2. JANUVIA [Suspect]
     Active Substance: SITAGLIPTIN PHOSPHATE
  3. PLAVIX [Concomitant]
     Active Substance: CLOPIDOGREL BISULFATE
  4. BELOC [Concomitant]
     Active Substance: METOPROLOL TARTRATE
  5. ISOSORBIDE MONONITRATE. [Concomitant]
     Active Substance: ISOSORBIDE MONONITRATE
  6. BYETTA [Suspect]
     Active Substance: EXENATIDE
     Indication: TYPE 2 DIABETES MELLITUS
     Dosage: ONGOING
     Route: 058
     Dates: start: 20140820
  7. THIOCTACID [Concomitant]
     Active Substance: .ALPHA.-LIPOIC ACID
  8. ASPIRIN. [Concomitant]
     Active Substance: ASPIRIN
  9. TRIMETAZIDINE [Concomitant]
     Active Substance: TRIMETAZIDINE
  10. FLUOXETINE HCL [Concomitant]
     Active Substance: FLUOXETINE HYDROCHLORIDE
  11. METFORMIN [Suspect]
     Active Substance: METFORMIN HYDROCHLORIDE
  12. LEVEMIR [Suspect]
     Active Substance: INSULIN DETEMIR
  13. PARACETAMOL [Concomitant]
     Active Substance: ACETAMINOPHEN

REACTIONS (4)
  - Hyperhidrosis [Not Recovered/Not Resolved]
  - Bronchitis [Unknown]
  - Blood glucose increased [Not Recovered/Not Resolved]
  - Drug administration error [Unknown]

NARRATIVE: CASE EVENT DATE: 2014
